FAERS Safety Report 9719419 (Version 2)
Quarter: 2013Q4

REPORT INFORMATION
  Report Type: Report from Study
  Country: US (occurrence: US)
  Receive Date: 20131128
  Receipt Date: 20131223
  Transmission Date: 20140711
  Serious: Yes (Hospitalization, Other)
  Sender: FDA-Public Use
  Company Number: US-ROCHE-1306844

PATIENT
  Age: 10 Year
  Sex: Male
  Weight: 24.6 kg

DRUGS (7)
  1. NUTROPIN AQ [Suspect]
     Indication: GROWTH HORMONE DEFICIENCY
     Dosage: NUTROPIN NUSPIN 10MG
     Route: 058
  2. HEPARIN [Concomitant]
     Dosage: 100 UINT/ML
     Route: 042
  3. PARENTERAL NUTRITION [Concomitant]
     Dosage: 116 ML/HR FOR 10HOURS
     Route: 042
  4. GUAR GUM [Concomitant]
     Dosage: 1 PACKET
     Route: 048
  5. FAT EMULSION 20% [Concomitant]
     Dosage: 75 ML OVER 8 HOURS
     Route: 042
  6. TPN [Concomitant]
     Route: 042
  7. FERROUS SULFATE [Concomitant]

REACTIONS (5)
  - Device related infection [Unknown]
  - Chills [Unknown]
  - Abdominal pain [Unknown]
  - Pyrexia [Unknown]
  - Hypophagia [Unknown]
